FAERS Safety Report 5802797-2 (Version None)
Quarter: 2008Q3

REPORT INFORMATION
  Report Type: 
  Country: None (occurrence: None)
  Receive Date: 20080708
  Receipt Date: 20080627
  Transmission Date: 20090109
  Serious: Yes (Other)
  Sender: FDA-Public Use
  Company Number: TW-AMGEN-US290552

PATIENT
  Sex: Female

DRUGS (10)
  1. ARANESP [Suspect]
     Indication: RENAL FAILURE CHRONIC
     Route: 058
     Dates: start: 20060607
  2. CALCIUM CARBONATE [Concomitant]
  3. FOLIC ACID [Concomitant]
  4. VITAMIN B [Concomitant]
  5. ASPIRIN [Concomitant]
  6. FENOFIBRATE [Concomitant]
  7. GLICLAZIDE [Concomitant]
  8. ACARBOSE [Concomitant]
  9. FEXOFENADINE [Concomitant]
  10. ESOMEPRAZOLE MAGNESIUM [Concomitant]

REACTIONS (2)
  - ANAEMIA [None]
  - SERUM FERRITIN INCREASED [None]
